FAERS Safety Report 10714867 (Version 1)
Quarter: 2015Q1

REPORT INFORMATION
  Report Type: Spontaneous
  Country: US (occurrence: US)
  Receive Date: 20150115
  Receipt Date: 20150115
  Transmission Date: 20150721
  Serious: No
  Sender: FDA-Public Use
  Company Number: US-GLAXOSMITHKLINE-A1079106A

PATIENT
  Sex: Female

DRUGS (2)
  1. ALLI [Suspect]
     Active Substance: ORLISTAT
     Indication: HEPATIC STEATOSIS
     Route: 048
  2. XENICAL [Suspect]
     Active Substance: ORLISTAT
     Indication: HEPATIC STEATOSIS
     Route: 048

REACTIONS (3)
  - Therapeutic response unexpected [Unknown]
  - Drug administration error [Unknown]
  - Hepatomegaly [Unknown]
